FAERS Safety Report 6438326-2 (Version None)
Quarter: 2009Q4

REPORT INFORMATION
  Report Type: 
  Country: None (occurrence: None)
  Receive Date: 20091112
  Receipt Date: 20091022
  Transmission Date: 20100525
  Serious: No
  Sender: FDA-Public Use
  Company Number: US-JNJFOC-20091007355

PATIENT
  Age: 58 Year
  Sex: Male

DRUGS (3)
  1. INVEGA [Suspect]
     Indication: SCHIZOPHRENIA
     Route: 048
  2. HALDOL DECONATE [Concomitant]
     Indication: SCHIZOPHRENIA
  3. COGENTIN [Concomitant]
     Indication: MUSCULOSKELETAL STIFFNESS

REACTIONS (2)
  - MUSCLE RIGIDITY [None]
  - MUSCULOSKELETAL STIFFNESS [None]
